FAERS Safety Report 9217836 (Version 2)
Quarter: 2013Q2

REPORT INFORMATION
  Report Type: Report from Study
  Country: BR (occurrence: BR)
  Receive Date: 20130408
  Receipt Date: 20130605
  Transmission Date: 20140414
  Serious: Yes (Other)
  Sender: FDA-Public Use
  Company Number: PHHO2013BR004675

PATIENT
  Sex: Female

DRUGS (2)
  1. CERTICAN [Suspect]
     Dosage: FOETAL DRUG EXPOSURE VIA FATHER
  2. PULMINIQ [Suspect]
     Dosage: FOETAL DRUG EXPOSURE VIA FATHER

REACTIONS (2)
  - Oligohydramnios [Unknown]
  - Exposure via father [Unknown]
